FAERS Safety Report 6042663-3 (Version None)
Quarter: 2009Q1

REPORT INFORMATION
  Report Type: 
  Country: None (occurrence: None)
  Receive Date: 20090119
  Receipt Date: 20090107
  Transmission Date: 20090719
  Serious: Yes (Other)
  Sender: FDA-Public Use
  Company Number: PHEH2004US03575

PATIENT

DRUGS (8)
  1. AREDIA [Suspect]
     Indication: BREAST CANCER
     Dosage: 90 MG, QMO
     Route: 042
     Dates: start: 20010101, end: 20020101
  2. ZOMETA [Suspect]
     Indication: BREAST CANCER
     Dosage: 4 MG 1 TIME PER MONTH
     Route: 042
     Dates: start: 20020101, end: 20030101
  3. PAXIL [Concomitant]
     Indication: DEPRESSION
     Dosage: 20 MG, QD
     Route: 048
  4. TYLENOL (CAPLET) [Concomitant]
     Indication: PAIN
     Dosage: 100 MG PRN
     Route: 048
  5. OXYCONTIN [Concomitant]
     Indication: PAIN
     Dosage: 30 MG, BID
     Route: 048
  6. NAVELBINE [Concomitant]
  7. ARANESP [Concomitant]
  8. PEPCID [Concomitant]

REACTIONS (4)
  - BONE DISORDER [None]
  - INFECTION [None]
  - OSTEONECROSIS [None]
  - PAIN [None]
